FAERS Safety Report 5573516-2 (Version None)
Quarter: 2007Q4

REPORT INFORMATION
  Report Type: 
  Country: None (occurrence: None)
  Receive Date: 20071226
  Receipt Date: 20071220
  Transmission Date: 20080405
  Serious: Yes (Hospitalization)
  Sender: FDA-Public Use
  Company Number: FR-WYE-G00739207

PATIENT
  Sex: Male
  Weight: 61 kg

DRUGS (24)
  1. GEMTUZUMAB OZOGAMICIN [Suspect]
     Indication: ACUTE MYELOID LEUKAEMIA
     Dosage: 5.3 MG TOTAL DAILY
     Route: 042
     Dates: start: 20071123, end: 20071123
  2. GEMTUZUMAB OZOGAMICIN [Suspect]
     Indication: BONE PAIN
     Dosage: 5.3 MG TOTAL DAILY
     Route: 042
     Dates: start: 20071126, end: 20071126
  3. GEMTUZUMAB OZOGAMICIN [Suspect]
     Indication: LEUKAEMIA RECURRENT
     Dosage: 5.3 MG TOTAL DAILY
     Route: 042
     Dates: start: 20071129, end: 20071129
  4. ARACYTINE [Suspect]
     Indication: ACUTE MYELOID LEUKAEMIA
     Route: 042
     Dates: start: 20071123, end: 20071127
  5. ARACYTINE [Suspect]
     Indication: BONE PAIN
  6. ARACYTINE [Suspect]
     Indication: LEUKAEMIA RECURRENT
  7. FORTUM [Suspect]
     Dosage: UNKNOWN
     Route: 042
     Dates: end: 20071123
  8. CIFLOX [Suspect]
     Route: 042
     Dates: end: 20071125
  9. RASBURICASE [Suspect]
     Dosage: UNKNOWN
     Route: 042
     Dates: start: 20071121, end: 20071124
  10. LEXOMIL [Concomitant]
     Dosage: UNKNOWN
     Dates: end: 20071124
  11. PERFALGAN [Concomitant]
     Dosage: UNKNOWN
     Dates: end: 20071128
  12. INIPOMP [Suspect]
     Dosage: UNKNOWN
     Route: 048
     Dates: end: 20071130
  13. MORPHINE [Concomitant]
     Indication: BONE PAIN
     Dosage: UNKNOWN
  14. ACUPAN [Concomitant]
     Indication: BONE PAIN
     Dosage: UNKNOWN
  15. ZOPHREN [Suspect]
     Indication: VOMITING
     Dosage: UNKNOWN
     Route: 048
     Dates: start: 20071123, end: 20071128
  16. TAZOCILLINE [Concomitant]
     Dosage: UNKNOWN
     Route: 042
     Dates: start: 20071123, end: 20071205
  17. AMIKLIN [Concomitant]
     Dosage: UNKNOWN
     Dates: end: 20071125
  18. STILNOX [Concomitant]
     Dosage: UNKNOWN
     Dates: end: 20071128
  19. TRIFLUCAN [Concomitant]
     Dosage: UNKNOWN
     Dates: start: 20071125
  20. MYOLASTAN [Concomitant]
     Dosage: UNKNOWN
  21. SOLU-MEDROL [Concomitant]
     Dosage: UNKNOWN
     Dates: start: 20071125, end: 20071128
  22. NOVANTRONE [Suspect]
     Indication: ACUTE MYELOID LEUKAEMIA
     Route: 042
     Dates: start: 20071123, end: 20071125
  23. NOVANTRONE [Suspect]
     Indication: BONE PAIN
  24. NOVANTRONE [Suspect]
     Indication: LEUKAEMIA RECURRENT

REACTIONS (2)
  - CHOLESTASIS [None]
  - PANCREATITIS ACUTE [None]
